FAERS Safety Report 8543147-0 (Version None)
Quarter: 2012Q3

REPORT INFORMATION
  Report Type: 
  Country: None (occurrence: None)
  Receive Date: 20120727
  Receipt Date: 20120702
  Transmission Date: 20120928
  Serious: No
  Sender: FDA-Public Use
  Company Number: US-MYLANLABS-2012S1011179

PATIENT
  Age: 58 Year
  Sex: Female

DRUGS (2)
  1. LEVOTHYROXINE SODIUM [Suspect]
     Indication: HYPOTHYROIDISM
     Route: 048
     Dates: start: 20110601
  2. LEVOTHYROXINE SODIUM [Suspect]
     Route: 048
     Dates: start: 20110601

REACTIONS (4)
  - DRUG EFFECT DECREASED [None]
  - FEELING COLD [None]
  - WEIGHT INCREASED [None]
  - CONSTIPATION [None]
